FAERS Safety Report 21499967 (Version 1)
Quarter: 2022Q4

REPORT INFORMATION
  Report Type: Spontaneous
  Country: IN (occurrence: IN)
  Receive Date: 20221024
  Receipt Date: 20221024
  Transmission Date: 20230112
  Serious: Yes (Death)
  Sender: FDA-Public Use
  Company Number: IN-PFIZER INC-2021247708

PATIENT
  Age: 61 Year
  Sex: Female

DRUGS (6)
  1. PALBOCICLIB [Suspect]
     Active Substance: PALBOCICLIB
     Indication: Breast cancer metastatic
     Dosage: 21 DAYS OF 28
     Route: 048
     Dates: start: 20201118, end: 202208
  2. FULVESTRANT [Concomitant]
     Active Substance: FULVESTRANT
     Dosage: UNK, CYCLIC
  3. PANTOCID-D [Concomitant]
     Dosage: 1 DF, 1X/DAY
  4. PREGABALIN [Concomitant]
     Active Substance: PREGABALIN
     Dosage: 75 MG, 2X/DAY
  5. MONTEK LC [Concomitant]
     Dosage: 1 DF, 1X/DAY
  6. VIT D + CAL [Concomitant]
     Dosage: 1 DF, 2X/DAY

REACTIONS (4)
  - Death [Fatal]
  - Neoplasm progression [Unknown]
  - COVID-19 [Unknown]
  - Off label use [Unknown]

NARRATIVE: CASE EVENT DATE: 20220819
